FAERS Safety Report 6669671-3 (Version None)
Quarter: 2010Q2

REPORT INFORMATION
  Report Type: 
  Country: None (occurrence: None)
  Receive Date: 20100406
  Receipt Date: 20100324
  Transmission Date: 20101027
  Serious: Yes (Hospitalization, Other)
  Sender: FDA-Public Use
  Company Number: US-ELI_LILLY_AND_COMPANY-US201001005501

PATIENT
  Sex: Female
  Weight: 54.422 kg

DRUGS (16)
  1. CYMBALTA [Suspect]
     Indication: DEPRESSION
     Dosage: 60 MG, DAILY (1/D)
     Dates: start: 20081001
  2. CYMBALTA [Suspect]
     Dosage: 60 MG, 2/D
     Dates: start: 20081001
  3. PROZAC [Suspect]
     Indication: DEPRESSION
     Dosage: 40 MG, DAILY (1/D)
     Dates: start: 19950101, end: 19950101
  4. MORPHINE SULFATE [Concomitant]
     Dates: start: 19990101
  5. OTHER ANALGESICS AND ANTIPYRETICS [Concomitant]
  6. TOPAMAX [Concomitant]
     Dosage: 200 MG, DAILY (1/D)
  7. AMPICILLIN SODIUM [Concomitant]
  8. ZITHROMAX [Concomitant]
  9. AUGMENTAN /00756801/ [Concomitant]
  10. OXYCODONE [Concomitant]
     Dosage: 30 MG, EVERY 4 HRS
  11. MS CONTIN [Concomitant]
     Dosage: 100 MG, 4/D
  12. SOMA [Concomitant]
     Dosage: 350 MG, 3/D
  13. COLACE [Concomitant]
  14. CLONAZEPAM [Concomitant]
     Dosage: 2 MG, 3/D
  15. ZOLPIDEM [Concomitant]
     Dosage: 10 MG, EACH EVENING
  16. BLOOD AND RELATED PRODUCTS [Concomitant]

REACTIONS (21)
  - ABNORMAL BEHAVIOUR [None]
  - CARDIOMYOPATHY [None]
  - CHEST PAIN [None]
  - CONSTIPATION [None]
  - CONVERSION DISORDER [None]
  - DISINHIBITION [None]
  - DRUG INTERACTION [None]
  - ELECTROCARDIOGRAM ABNORMAL [None]
  - ENTEROCOCCAL INFECTION [None]
  - ENTEROCOLITIS [None]
  - GASTROOESOPHAGEAL REFLUX DISEASE [None]
  - INCREASED APPETITE [None]
  - INFECTION [None]
  - MIGRAINE [None]
  - MYOCARDIAL INFARCTION [None]
  - NIGHTMARE [None]
  - PNEUMOTHORAX [None]
  - SELF-INJURIOUS IDEATION [None]
  - SUICIDAL IDEATION [None]
  - THINKING ABNORMAL [None]
  - TOOTH LOSS [None]
